FAERS Safety Report 19937108 (Version 3)
Quarter: 2022Q3

REPORT INFORMATION
  Report Type: Spontaneous
  Country: US (occurrence: US)
  Receive Date: 20211010
  Receipt Date: 20220701
  Transmission Date: 20221026
  Serious: No
  Sender: FDA-Public Use
  Company Number: LUPR21-02870

PATIENT
  Sex: Female

DRUGS (1)
  1. ALBUTEROL SULFATE [Suspect]
     Active Substance: ALBUTEROL SULFATE
     Indication: Product used for unknown indication
     Dosage: UNK 2 PUFFS EVERY 4 TO 6 HOURS AS NEEDED
     Dates: start: 202109

REACTIONS (3)
  - Device malfunction [Unknown]
  - Extra dose administered [Unknown]
  - No adverse event [Unknown]
